FAERS Safety Report 12640745 (Version 1)
Quarter: 2016Q3

REPORT INFORMATION
  Report Type: Spontaneous
  Country: IT (occurrence: IT)
  Receive Date: 20160810
  Receipt Date: 20160810
  Transmission Date: 20161109
  Serious: Yes (Other)
  Sender: FDA-Public Use
  Company Number: IT-TEVA-684044ISR

PATIENT
  Age: 54 Year
  Sex: Female
  Weight: 78 kg

DRUGS (4)
  1. FLUOROURACILE [Suspect]
     Active Substance: FLUOROURACIL
     Indication: COLON CANCER
     Dosage: 4268 MILLIGRAM DAILY;
     Route: 042
     Dates: start: 20160523
  2. VECTIBIX [Suspect]
     Active Substance: PANITUMUMAB
     Indication: COLON CANCER
     Dosage: 468 MILLIGRAM DAILY;
     Route: 042
     Dates: start: 20160523
  3. FLUOROURACILE [Suspect]
     Active Substance: FLUOROURACIL
     Dosage: 728 MILLIGRAM DAILY;
     Route: 040
     Dates: start: 20160523
  4. IRINOTECAN [Suspect]
     Active Substance: IRINOTECAN
     Indication: COLON CANCER
     Dosage: 327.6 MILLIGRAM DAILY;
     Route: 042
     Dates: start: 20160523

REACTIONS (2)
  - Mucosal inflammation [Not Recovered/Not Resolved]
  - Skin toxicity [Not Recovered/Not Resolved]

NARRATIVE: CASE EVENT DATE: 20160524
